FAERS Safety Report 9298091 (Version 2)
Quarter: 2014Q1

REPORT INFORMATION
  Report Type: Spontaneous
  Country: US (occurrence: US)
  Receive Date: 20130520
  Receipt Date: 20140324
  Transmission Date: 20141002
  Serious: Yes (Death, Other)
  Sender: FDA-Public Use
  Company Number: US-SANOFI-AVENTIS-2013SA049237

PATIENT
  Age: 57 Year
  Sex: Female

DRUGS (3)
  1. ENOXAPARIN SODIUM - WINTHROP [Suspect]
     Indication: THROMBOSIS
  2. BACTRIM [Concomitant]
  3. PREDNISONE [Concomitant]

REACTIONS (2)
  - Death [Fatal]
  - Hallucination, visual [Not Recovered/Not Resolved]
